FAERS Safety Report 17756280 (Version 1)
Quarter: 2020Q2

REPORT INFORMATION
  Report Type: Spontaneous
  Country: FR (occurrence: FR)
  Receive Date: 20200507
  Receipt Date: 20200507
  Transmission Date: 20200714
  Serious: Yes (Disabling)
  Sender: FDA-Public Use
  Company Number: FR-MYLANLABS-2020M1045289

PATIENT
  Age: 36 Year
  Sex: Female
  Weight: 57 kg

DRUGS (1)
  1. TAMOXIFEN [Suspect]
     Active Substance: TAMOXIFEN
     Indication: BREAST CANCER
     Dosage: UNK
     Route: 048
     Dates: start: 2017, end: 2019

REACTIONS (3)
  - Dyspareunia [Recovered/Resolved]
  - Vulvovaginal pain [Recovered/Resolved]
  - Arthralgia [Recovered/Resolved]

NARRATIVE: CASE EVENT DATE: 2017
